FAERS Safety Report 6250012-0 (Version None)
Quarter: 2009Q2

REPORT INFORMATION
  Report Type: 
  Country: None (occurrence: None)
  Receive Date: 20090629
  Receipt Date: 20090617
  Transmission Date: 20091009
  Serious: Yes (Other)
  Sender: FDA-Public Use
  Company Number: PHHY2009MX22997

PATIENT
  Sex: Female

DRUGS (6)
  1. DIOVAN HCT [Suspect]
     Indication: HYPERTENSION
     Dosage: 1 TABLET (160/25 MG) PER DAY
     Dates: start: 19940601
  2. TRILEPTAL [Suspect]
     Indication: EPILEPSY
     Dosage: 300 MG, BID
     Route: 048
     Dates: start: 20081112, end: 20090602
  3. DILATREND [Concomitant]
  4. CATAPRESAN [Concomitant]
     Indication: HYPERTENSION
     Dosage: UNK
     Dates: end: 20080601
  5. CATAPRESAN [Concomitant]
     Dosage: UNK
  6. NORVASC [Concomitant]
     Dosage: UNK
     Dates: start: 20080601, end: 20081101

REACTIONS (5)
  - BRADYCARDIA [None]
  - CARDIAC PACEMAKER INSERTION [None]
  - ORTHOPEDIC PROCEDURE [None]
  - THERAPY CESSATION [None]
  - ULCER [None]
